FAERS Safety Report 24184926 (Version 1)
Quarter: 2024Q3

REPORT INFORMATION
  Report Type: Spontaneous
  Country: US (occurrence: US)
  Receive Date: 20240807
  Receipt Date: 20240807
  Transmission Date: 20241017
  Serious: No
  Sender: LANNETT
  Company Number: MIQ-01042024-443(V1)

PATIENT
  Sex: Female

DRUGS (1)
  1. DIETHYLPROPION HYDROCHLORIDE [Suspect]
     Active Substance: DIETHYLPROPION HYDROCHLORIDE
     Indication: Weight decreased
     Dosage: UNK
     Route: 048

REACTIONS (3)
  - Decreased appetite [Unknown]
  - Drug ineffective [Unknown]
  - Product physical issue [Unknown]
